FAERS Safety Report 9387780 (Version 1)
Quarter: 2013Q3

REPORT INFORMATION
  Report Type: Spontaneous
  Country: GB (occurrence: None)
  Receive Date: 20130703
  Receipt Date: 20130703
  Transmission Date: 20140515
  Serious: Yes (Other)
  Sender: FDA-Public Use
  Company Number: GER/UKI/13/0030327

PATIENT
  Age: 48 Year
  Sex: Male

DRUGS (2)
  1. QUETIAPINE [Suspect]
     Indication: BIPOLAR DISORDER
     Route: 048
     Dates: start: 20130522, end: 20130614
  2. PREGABALIN (PREGABALIN) [Concomitant]

REACTIONS (4)
  - Dysarthria [None]
  - Facial paresis [None]
  - Muscular weakness [None]
  - Transient ischaemic attack [None]
